FAERS Safety Report 6535000-9 (Version None)
Quarter: 2010Q1

REPORT INFORMATION
  Report Type: 
  Country: None (occurrence: None)
  Receive Date: 20100112
  Receipt Date: 20100111
  Transmission Date: 20100710
  Serious: Yes (Death, Hospitalization, Other)
  Sender: FDA-Public Use
  Company Number: US-MERCK-0908USA02519

PATIENT
  Age: 82 Year
  Sex: Female
  Weight: 65 kg

DRUGS (3)
  1. FOSAMAX [Suspect]
     Indication: BREAST CANCER
     Route: 048
     Dates: start: 20040101, end: 20060101
  2. FOSAMAX [Suspect]
     Route: 048
     Dates: start: 20050101, end: 20060101
  3. ZOMETA [Suspect]
     Route: 065
     Dates: start: 20051201, end: 20060101

REACTIONS (11)
  - ALVEOLAR OSTEITIS [None]
  - ANXIETY [None]
  - DEATH [None]
  - DENTAL CARIES [None]
  - DEPRESSION [None]
  - DISCOMFORT [None]
  - FEAR [None]
  - OSTEONECROSIS [None]
  - PAIN [None]
  - SWELLING [None]
  - TOOTH INFECTION [None]
